FAERS Safety Report 10411264 (Version 2)
Quarter: 2014Q3

REPORT INFORMATION
  Report Type: Spontaneous
  Country: US (occurrence: US)
  Receive Date: 20140826
  Receipt Date: 20140826
  Transmission Date: 20150326
  Serious: No
  Sender: FDA-Public Use
  Company Number: US-ASTRAZENECA-2013SE90504

PATIENT
  Sex: Female

DRUGS (1)
  1. SYMBICORT [Suspect]
     Active Substance: BUDESONIDE\FORMOTEROL FUMARATE DIHYDRATE
     Dosage: 80 MCG/4.5 MCG, 2 PUFFS, TWO TIMES A DAY
     Route: 055

REACTIONS (3)
  - Device misuse [Unknown]
  - Cough [Unknown]
  - Drug ineffective [Unknown]
